FAERS Safety Report 5646902-X (Version None)
Quarter: 2008Q1

REPORT INFORMATION
  Report Type: 
  Country: None (occurrence: None)
  Receive Date: 20080303
  Receipt Date: 20080221
  Transmission Date: 20080703
  Serious: No
  Sender: FDA-Public Use
  Company Number: CA-ELI_LILLY_AND_COMPANY-CA200802005258

PATIENT
  Age: 45 Year
  Sex: Male

DRUGS (3)
  1. CIALIS [Suspect]
     Dosage: 20 MG, UNK
  2. FLOMAX [Concomitant]
  3. XATRAL /00975301/ [Concomitant]

REACTIONS (1)
  - VISUAL ACUITY REDUCED [None]
